FAERS Safety Report 9476271 (Version 1)
Quarter: 2013Q3

REPORT INFORMATION
  Report Type: Spontaneous
  Country: US (occurrence: None)
  Receive Date: 20130823
  Receipt Date: 20130823
  Transmission Date: 20140515
  Serious: No
  Sender: FDA-Public Use
  Company Number: None

PATIENT
  Age: 86 Year
  Sex: Female

DRUGS (1)
  1. XELODA [Suspect]
     Route: 048
     Dates: start: 201304

REACTIONS (4)
  - Diarrhoea [None]
  - Pyrexia [None]
  - Asthenia [None]
  - Fatigue [None]
